FAERS Safety Report 14427050 (Version 3)
Quarter: 2018Q1

REPORT INFORMATION
  Report Type: Report from Study
  Country: PL (occurrence: PL)
  Receive Date: 20180123
  Receipt Date: 20180309
  Transmission Date: 20180509
  Serious: Yes (Hospitalization)
  Sender: FDA-Public Use
  Company Number: PL-TAKEDA-2018TUS001448

PATIENT
  Age: 59 Year
  Sex: Male
  Weight: 65.4 kg

DRUGS (7)
  1. SULFASALAZINE. [Concomitant]
     Active Substance: SULFASALAZINE
     Indication: CROHN^S DISEASE
     Dosage: 3 G, BID
     Route: 048
  2. AZATHIOPRINUM [Concomitant]
     Active Substance: AZATHIOPRINE
     Indication: CROHN^S DISEASE
     Dosage: 150 MG, QD
     Route: 048
     Dates: end: 20180112
  3. CILAZAPRILUM [Concomitant]
     Indication: MYOCARDIAL ISCHAEMIA
     Dosage: 2.5 MG, QD
     Route: 048
  4. ATORVASTATINUM [Concomitant]
     Indication: MYOCARDIAL ISCHAEMIA
     Dosage: 40 MG, QD
     Route: 048
  5. VEDOLIZUMAB [Suspect]
     Active Substance: VEDOLIZUMAB
     Indication: CROHN^S DISEASE
     Dosage: UNK
     Route: 058
     Dates: start: 20170512
  6. FENOFIBRATUM [Concomitant]
     Indication: MYOCARDIAL ISCHAEMIA
     Dosage: 267 MG, QD
     Route: 048
  7. BISOPROLOLI FUMARAS (2:1) [Concomitant]
     Indication: MYOCARDIAL ISCHAEMIA
     Dosage: 0.5 MG, QD
     Route: 048

REACTIONS (1)
  - Influenza [Recovered/Resolved]

NARRATIVE: CASE EVENT DATE: 20180112
